FAERS Safety Report 6525829-5 (Version None)
Quarter: 2010Q1

REPORT INFORMATION
  Report Type: 
  Country: None (occurrence: None)
  Receive Date: 20100104
  Receipt Date: 20091224
  Transmission Date: 20100710
  Serious: Yes (Hospitalization, Disabling)
  Sender: FDA-Public Use
  Company Number: B0609205A

PATIENT
  Sex: Female
  Weight: 59 kg

DRUGS (7)
  1. VALTREX [Suspect]
     Indication: HERPES ZOSTER
     Dosage: 500MG THREE TIMES PER DAY
     Route: 048
     Dates: start: 20091120, end: 20091121
  2. WARFARIN [Concomitant]
     Dosage: 1MG PER DAY
     Route: 048
  3. ASPIRIN [Concomitant]
     Dosage: 200MG PER DAY
     Route: 048
  4. ANPLAG [Concomitant]
     Dosage: 200MG PER DAY
     Route: 048
  5. LANSOPRAZOLE [Concomitant]
     Dosage: 10MG PER DAY
  6. RISUMIC [Concomitant]
     Dosage: 10MG PER DAY
     Route: 048
  7. URSO 250 [Concomitant]
     Dosage: 300MG PER DAY
     Route: 048

REACTIONS (6)
  - ALTERED STATE OF CONSCIOUSNESS [None]
  - AMNESIA [None]
  - CEREBRAL INFARCTION [None]
  - DYSLALIA [None]
  - ENCEPHALOPATHY [None]
  - OVERDOSE [None]
